FAERS Safety Report 6127509-7 (Version None)
Quarter: 2009Q1

REPORT INFORMATION
  Report Type: 
  Country: None (occurrence: None)
  Receive Date: 20090323
  Receipt Date: 20090311
  Transmission Date: 20090719
  Serious: Yes (Death)
  Sender: FDA-Public Use
  Company Number: US-WYE-H08579709

PATIENT
  Sex: Female

DRUGS (9)
  1. PROTONIX [Suspect]
     Dosage: UNKNOWN
     Route: 048
  2. PROMETHAZINE HCL [Suspect]
     Dosage: 25 MG AS NEEDED
     Route: 048
  3. ZOLPIDEM [Suspect]
     Indication: INSOMNIA
     Route: 048
  4. OPANA ER [Suspect]
     Indication: BACK PAIN
     Route: 048
     Dates: start: 20070619, end: 20090113
  5. TOPAMAX [Suspect]
     Indication: INTERCOSTAL NEURALGIA
     Route: 048
  6. MACROBID [Suspect]
     Dosage: UNKNOWN
  7. NEXIUM [Suspect]
     Dosage: 40 MG, FREQUENCY UNKNOWN
  8. XANAX [Suspect]
     Dosage: 1 MG AS NEEDED
     Route: 048
  9. PROZAC [Suspect]
     Dosage: UNKNOWN

REACTIONS (3)
  - CARDIAC ARREST [None]
  - CHEST PAIN [None]
  - LOSS OF CONSCIOUSNESS [None]
